FAERS Safety Report 5718854-5 (Version None)
Quarter: 2008Q2

REPORT INFORMATION
  Report Type: 
  Country: None (occurrence: None)
  Receive Date: 20080423
  Receipt Date: 20080409
  Transmission Date: 20081010
  Serious: Yes (Life-Threatening, Hospitalization)
  Sender: FDA-Public Use
  Company Number: 8031887

PATIENT
  Age: 31 Year
  Sex: Female
  Weight: 60 kg

DRUGS (2)
  1. KEPPRA [Suspect]
     Indication: MYOCLONIC EPILEPSY
     Dosage: 500 MG 2/D PO
     Route: 048
     Dates: start: 20050101, end: 20080215
  2. DEPAKOTE [Suspect]
     Indication: MYOCLONIC EPILEPSY
     Dosage: 750 MG PO
     Route: 048
     Dates: start: 20060101, end: 20080201

REACTIONS (5)
  - EPSTEIN-BARR VIRUS ANTIBODY POSITIVE [None]
  - GINGIVAL BLEEDING [None]
  - INFLUENZA LIKE ILLNESS [None]
  - PANCYTOPENIA [None]
  - VIRAL INFECTION [None]
